FAERS Safety Report 5291437-X (Version None)
Quarter: 2007Q2

REPORT INFORMATION
  Report Type: 
  Country: None (occurrence: None)
  Receive Date: 20070402
  Receipt Date: 20070316
  Transmission Date: 20071010
  Serious: Yes (Life-Threatening)
  Sender: FDA-Public Use
  Company Number: 8022564

PATIENT
  Age: 11 Year
  Sex: Male
  Weight: 47 kg

DRUGS (5)
  1. KEPPRA [Suspect]
     Indication: DYSPHEMIA
     Dosage: 250 MG 2/D PO
     Route: 048
     Dates: start: 20070101
  2. KEPPRA [Suspect]
     Indication: EPILEPSY
     Dosage: 250 MG 2/D PO
     Route: 048
     Dates: start: 20070101
  3. KEPPRA [Suspect]
     Indication: DYSPHEMIA
     Dosage: NI PO
     Route: 048
  4. KEPPRA [Suspect]
     Indication: EPILEPSY
     Dosage: NI PO
     Route: 048
  5. FRISIUM [Concomitant]

REACTIONS (3)
  - ANGER [None]
  - ANXIETY [None]
  - SELF INJURIOUS BEHAVIOUR [None]
